FAERS Safety Report 10451217 (Version 2)
Quarter: 2014Q4

REPORT INFORMATION
  Report Type: Spontaneous
  Country: US (occurrence: US)
  Receive Date: 20140912
  Receipt Date: 20141218
  Transmission Date: 20150528
  Serious: No
  Sender: FDA-Public Use
  Company Number: US-GALDERMA-US14001936

PATIENT
  Age: 54 Year
  Sex: Female

DRUGS (4)
  1. WALGREENS ROSACEA CLEANSER [Concomitant]
     Indication: THERAPEUTIC SKIN CARE TOPICAL
     Route: 061
     Dates: start: 2012
  2. MIRVASO [Suspect]
     Active Substance: BRIMONIDINE TARTRATE
     Indication: ROSACEA
     Dosage: 0.33%
     Route: 061
     Dates: start: 20140412, end: 20140414
  3. MULTI VITAMIN [Concomitant]
     Active Substance: VITAMINS
     Dates: start: 1998
  4. ROSACEA CLEANSER [Concomitant]
     Route: 061
     Dates: start: 1995

REACTIONS (3)
  - Feeling hot [Recovered/Resolved]
  - Erythema [Recovered/Resolved]
  - Condition aggravated [Recovered/Resolved]

NARRATIVE: CASE EVENT DATE: 20140414
